FAERS Safety Report 21914328 (Version 2)
Quarter: 2023Q1

REPORT INFORMATION
  Report Type: Spontaneous
  Country: US (occurrence: US)
  Receive Date: 20230126
  Receipt Date: 20230215
  Transmission Date: 20230418
  Serious: Yes (Death, Life-Threatening, Hospitalization, Other)
  Sender: FDA-Public Use
  Company Number: US-drreddys-SPO/USA/23/0160167

PATIENT
  Age: 37 Year
  Sex: Male
  Weight: 41 kg

DRUGS (21)
  1. PROPOFOL [Suspect]
     Active Substance: PROPOFOL
     Indication: Product used for unknown indication
     Dosage: SMALL DOSES
  2. PROPOFOL [Suspect]
     Active Substance: PROPOFOL
  3. PROPOFOL [Suspect]
     Active Substance: PROPOFOL
  4. LIDOCAINE [Suspect]
     Active Substance: LIDOCAINE
     Indication: Dental local anaesthesia
     Dosage: 3.6 ML
     Route: 004
  5. LIDOCAINE [Suspect]
     Active Substance: LIDOCAINE
  6. SUCCINYLCHOLINE CHLORIDE [Suspect]
     Active Substance: SUCCINYLCHOLINE CHLORIDE
     Indication: Product used for unknown indication
  7. MIDAZOLAM [Suspect]
     Active Substance: MIDAZOLAM
     Indication: Sedation
     Dosage: FIRST DOSE
     Route: 042
  8. MIDAZOLAM [Suspect]
     Active Substance: MIDAZOLAM
     Dosage: FINAL
     Route: 042
  9. MIDAZOLAM [Suspect]
     Active Substance: MIDAZOLAM
     Dosage: 15 MINUTES AFTER THE FIRST DOSE
     Route: 042
  10. EPINEPHRINE [Suspect]
     Active Substance: EPINEPHRINE
     Indication: Dental local anaesthesia
     Dosage: 1:100000, ADMINISTERED TO TEETH NOS. 17 AND 18 VIA BUCCAL INFILTRATION AND PERIODONTAL LIGAMENT INJE
     Route: 004
  11. EPINEPHRINE [Suspect]
     Active Substance: EPINEPHRINE
     Indication: Dental local anaesthesia
     Dosage: 1:100000, APPROXIMATELY 45 MINUTES AFTER THE PREVIOUS MANDIBULAR INJECTIONS
     Route: 004
  12. EPINEPHRINE [Suspect]
     Active Substance: EPINEPHRINE
     Dosage: 1:100000, VIA BUCCAL AND LINGUAL INFILTRATION AROUND TEETH NOS. 29 TO 32
     Route: 004
  13. EPINEPHRINE [Suspect]
     Active Substance: EPINEPHRINE
     Dosage: 1:100000, BILATERAL BUCCAL AND PALATAL INFILTRATION OF THE MAXILLARY MOLARS
     Route: 004
  14. ARTICAINE [Suspect]
     Active Substance: ARTICAINE
     Indication: Dental local anaesthesia
     Dosage: 1.8 ML, BUCCAL AND LINGUAL INFILTRATION AROUND TEETH NOS. 29 TO 32
     Route: 004
  15. ARTICAINE [Suspect]
     Active Substance: ARTICAINE
     Dosage: 1.8 ML, ADMINISTERED TO TEETH NOS. 17 AND 18 VIA BUCCAL INFILTRATION AND PERIODONTAL LIGAMENT INJECT
     Route: 004
  16. ARTICAINE [Suspect]
     Active Substance: ARTICAINE
     Dosage: 3.6 ML, BILATERAL BUCCAL AND PALATAL INFILTRATION OF THE MAXILLARY MOLARS
     Route: 004
  17. DOCUSATE [Concomitant]
     Active Substance: DOCUSATE
     Indication: Product used for unknown indication
  18. SALINE [Concomitant]
     Active Substance: SODIUM CHLORIDE
     Indication: Product used for unknown indication
     Route: 042
  19. DENTA 5000 PLUS 1.1 Percent [Concomitant]
     Indication: Product used for unknown indication
  20. OXYGEN [Concomitant]
     Active Substance: OXYGEN
     Indication: Oxygen therapy
     Route: 045
  21. SENNA [Concomitant]
     Active Substance: SENNA LEAF\SENNOSIDES\SENNOSIDES A AND B
     Indication: Product used for unknown indication

REACTIONS (15)
  - Craniocerebral injury [Fatal]
  - Fall [Fatal]
  - Condition aggravated [Unknown]
  - Pneumothorax [Unknown]
  - Drug clearance decreased [Recovering/Resolving]
  - Myotonic dystrophy [Unknown]
  - Pneumonitis aspiration [Unknown]
  - Pneumonia [Unknown]
  - Hypersomnia [Unknown]
  - Hyporesponsive to stimuli [Recovering/Resolving]
  - Overdose [Unknown]
  - Arrhythmia [Unknown]
  - Electrocardiogram ST segment elevation [Recovered/Resolved]
  - Hypoxia [Unknown]
  - Cardiac arrest [Recovered/Resolved]
